FAERS Safety Report 12346377 (Version 1)
Quarter: 2016Q2

REPORT INFORMATION
  Report Type: Report from Study
  Country: BR (occurrence: BR)
  Receive Date: 20160509
  Receipt Date: 20160509
  Transmission Date: 20160815
  Serious: Yes (Other)
  Sender: FDA-Public Use
  Company Number: BR-ABBVIE-16K-020-1622126-00

PATIENT
  Age: 48 Year
  Sex: Female
  Weight: 84 kg

DRUGS (8)
  1. PRED FORTE [Concomitant]
     Active Substance: PREDNISOLONE ACETATE
     Indication: EYE INFLAMMATION
     Route: 047
  2. SODIUM DIPYRONE / PROMETHAZINE HYDROCHLORIDE / ADIPHENINE HYDROCHLORID [Concomitant]
     Indication: PAIN
     Route: 048
     Dates: start: 2012
  3. PARACETAMOL / CARISOPRODOL / SODIUM DICLOFENAC / ANHYDROUS CAFFEINE [Concomitant]
     Indication: PAIN
     Route: 048
     Dates: start: 2012
  4. FOLIC ACID. [Concomitant]
     Active Substance: FOLIC ACID
     Indication: RENAL DISORDER
     Route: 048
     Dates: start: 2012
  5. CYCLOBENZAPRINE [Concomitant]
     Active Substance: CYCLOBENZAPRINE
     Indication: PAIN
     Route: 048
     Dates: start: 2012
  6. METHOTREXATE [Concomitant]
     Active Substance: METHOTREXATE
     Indication: ANKYLOSING SPONDYLITIS
     Route: 048
     Dates: start: 2012
  7. AVADEN [Concomitant]
     Indication: MENOPAUSE
     Route: 048
     Dates: start: 2007
  8. HUMIRA [Suspect]
     Active Substance: ADALIMUMAB
     Indication: ANKYLOSING SPONDYLITIS
     Route: 058
     Dates: start: 20140505

REACTIONS (5)
  - Osteoarthritis [Recovered/Resolved]
  - Sinusitis [Recovering/Resolving]
  - Pain [Recovered/Resolved]
  - Meniscus injury [Recovering/Resolving]
  - Fall [Unknown]

NARRATIVE: CASE EVENT DATE: 2014
